FAERS Safety Report 9312485 (Version 2)
Quarter: 2013Q2

REPORT INFORMATION
  Report Type: Spontaneous
  Country: GB (occurrence: None)
  Receive Date: 20130520
  Receipt Date: 20130617
  Transmission Date: 20140414
  Serious: Yes (Death, Other)
  Sender: FDA-Public Use
  Company Number: 2013148790

PATIENT
  Age: 69 Year
  Sex: Male
  Weight: 105 kg

DRUGS (11)
  1. FRAGMIN [Suspect]
     Indication: PROPHYLAXIS
     Route: 058
     Dates: start: 20130501, end: 20130507
  2. FRAGMIN [Suspect]
     Route: 058
     Dates: start: 20130501, end: 20130507
  3. ALTEPLASE [Suspect]
     Indication: PULMONARY EMBOLISM
     Dosage: 10MG PLUS 90 MG INTRAVENOUS
     Route: 042
     Dates: start: 20130503
  4. MYCOPHENOLATE MOFETIL [Concomitant]
  5. TACROLIMUS [Concomitant]
  6. PREDNISOLONE [Concomitant]
  7. NIFEDIPINE [Concomitant]
  8. OMEPRAZOLE [Concomitant]
  9. SIMVASTATIN [Concomitant]
  10. DOXAZOSIN [Concomitant]
  11. ALFACALCIDOL [Concomitant]

REACTIONS (6)
  - Renal failure acute [None]
  - Haemorrhage [None]
  - Hypotension [None]
  - Haemoglobin decreased [None]
  - Peritoneal haemorrhage [None]
  - Muscle haemorrhage [None]
